FAERS Safety Report 19361449 (Version 6)
Quarter: 2023Q2

REPORT INFORMATION
  Report Type: Spontaneous
  Country: GB (occurrence: GB)
  Receive Date: 20210601
  Receipt Date: 20230619
  Transmission Date: 20230721
  Serious: Yes (Hospitalization, Other)
  Sender: FDA-Public Use
  Company Number: GB-SA-2019SA253956

PATIENT
  Age: 40 Year
  Sex: Female
  Weight: 110 kg

DRUGS (22)
  1. AUBAGIO [Suspect]
     Active Substance: TERIFLUNOMIDE
     Indication: Multiple sclerosis
     Dosage: 14 MG, QD
     Route: 048
     Dates: start: 201907
  2. BISOPROLOL [Concomitant]
     Active Substance: BISOPROLOL
     Dosage: 1 DF, QD
  3. DIAZEPAM [Concomitant]
     Active Substance: DIAZEPAM
     Dosage: 1 DF, PRN; TAKE ONE TABLET UP TO THREE TIMES A DAY WHEN NEEDED
  4. ORAMORPH SR SUSTAINED RELEASE [Concomitant]
     Active Substance: MORPHINE SULFATE
  5. SACUBITRIL\VALSARTAN [Concomitant]
     Active Substance: SACUBITRIL\VALSARTAN
     Dosage: 1 DF, BID
  6. AMLODIPINE [Concomitant]
     Active Substance: AMLODIPINE BESYLATE
     Dosage: UNK; DO NOT TAKE
  7. ALBUTEROL [Concomitant]
     Active Substance: ALBUTEROL
     Indication: Dyspnoea
     Dosage: 2 DF, QID; INHALE TWO PUFFS FOUR TIMES A DAY VIA SPACER
  8. ALBUTEROL [Concomitant]
     Active Substance: ALBUTEROL
     Dosage: 1 DF, PRN; USE ONE NEBULE IN THE NEBULISER UP TO FOUR TIMES DAILY WHEN REQUIRED
  9. SPIRONOLACTONE [Concomitant]
     Active Substance: SPIRONOLACTONE
     Dosage: 1 DF, QD, TAKE ONE EACH MORNING
  10. FUROSEMIDE [Concomitant]
     Active Substance: FUROSEMIDE
     Dosage: 120 MG, QD; 80MG IN THE MORNING AND 40MG LUNCHTIME
  11. FUROSEMIDE [Concomitant]
     Active Substance: FUROSEMIDE
     Dosage: 1 DF, QD, TAKE ONE EACH MORNING
  12. IVABRADINE [Concomitant]
     Active Substance: IVABRADINE
     Dosage: UNK; DO NOT TAKE
  13. GLICLAZIDE [Concomitant]
     Active Substance: GLICLAZIDE
     Dosage: 2 DF, BID; TAKE TWO TWICE DAILY
  14. APIXABAN [Concomitant]
     Active Substance: APIXABAN
     Dosage: UNK; DO NOT TAKE
  15. TINZAPARIN [Concomitant]
     Active Substance: TINZAPARIN
     Dosage: 17000 U, QD; INJECT 0.85ML (17,000 UNITS) SUBCUTANEOUSLY ONCE DAILY
     Route: 058
  16. CLOTRIMAZOLE [Concomitant]
     Active Substance: CLOTRIMAZOLE
     Dosage: UNK UNK, TID
  17. DAPAGLIFLOZIN [Concomitant]
     Active Substance: DAPAGLIFLOZIN
     Dosage: 1 DF, QD
  18. FLUCLOXACILLIN [Concomitant]
     Active Substance: FLUCLOXACILLIN
     Dosage: 1 DF, QID
     Dates: start: 20230322
  19. LANSOPRAZOLE [Concomitant]
     Active Substance: LANSOPRAZOLE
     Dosage: 1 DF, QD
  20. ASPIRIN [Concomitant]
     Active Substance: ASPIRIN
     Dosage: UNK; DO NOT TAKE
  21. DIMETHYL FUMARATE [Concomitant]
     Active Substance: DIMETHYL FUMARATE
     Dosage: 1 DF, BID
  22. MORPHINE SULFATE [Concomitant]
     Active Substance: MORPHINE SULFATE
     Dosage: 2.5 ML; TAKE 2.5MLS TWICE TO THREE TIMES A DAY

REACTIONS (24)
  - Diabetes mellitus [Not Recovered/Not Resolved]
  - Pulmonary embolism [Recovered/Resolved]
  - Dyspnoea exertional [Recovered/Resolved]
  - Orthopnoea [Recovered/Resolved]
  - Lethargy [Not Recovered/Not Resolved]
  - Fatigue [Not Recovered/Not Resolved]
  - Dilated cardiomyopathy [Not Recovered/Not Resolved]
  - Diabetes mellitus inadequate control [Recovered/Resolved with Sequelae]
  - Gingival disorder [Not Recovered/Not Resolved]
  - Oedema peripheral [Recovered/Resolved]
  - Tachycardia [Recovered/Resolved]
  - Blood glucose increased [Recovered/Resolved]
  - C-reactive protein increased [Recovered/Resolved]
  - Glycosylated haemoglobin increased [Unknown]
  - Pulmonary congestion [Recovered/Resolved with Sequelae]
  - Ventricular tachycardia [Unknown]
  - Pleuritic pain [Recovered/Resolved]
  - Acute kidney injury [Unknown]
  - Lower respiratory tract infection [Recovered/Resolved]
  - Vulvovaginal candidiasis [Recovered/Resolved]
  - Hospitalisation [Unknown]
  - Weight decreased [Not Recovered/Not Resolved]
  - Blood cholesterol increased [Not Recovered/Not Resolved]
  - Somnolence [Not Recovered/Not Resolved]

NARRATIVE: CASE EVENT DATE: 20190901
